FAERS Safety Report 26108620 (Version 1)
Quarter: 2025Q4

REPORT INFORMATION
  Report Type: Spontaneous
  Country: EU (occurrence: EU)
  Receive Date: 20251201
  Receipt Date: 20251201
  Transmission Date: 20260117
  Serious: Yes (Death, Life-Threatening, Hospitalization, Other)
  Sender: BAUSCH AND LOMB
  Company Number: None

PATIENT
  Age: 68 Year
  Sex: Male

DRUGS (4)
  1. DEXAMETHASONE [Suspect]
     Active Substance: DEXAMETHASONE
     Indication: Plasma cell myeloma
     Dosage: BDD REGIMEN (BORTEZIMID. DOXORUBICIN, DEXAMETHASONE) FIRST CYCLE
     Route: 065
     Dates: start: 2023
  2. VELCADE [Suspect]
     Active Substance: BORTEZOMIB
     Indication: Plasma cell myeloma
     Dosage: BDD REGIMEN (BORTEZIMID. DOXORUBICIN, DEXAMETHASONE) FIRST CYCLE
     Route: 065
     Dates: start: 2023
  3. DOXORUBICIN [Suspect]
     Active Substance: DOXORUBICIN
     Indication: Plasma cell myeloma
     Dosage: BDD REGIMEN (BORTEZIMID. DOXORUBICIN, DEXAMETHASONE) FIRST CYCLE
     Route: 065
     Dates: start: 2023
  4. PRESTARIUM COMBI [INDAPAMIDE;PERINDOPRIL ARGININE] [Concomitant]
     Indication: Hypertension

REACTIONS (7)
  - Urinary tract infection [Fatal]
  - Malignant neoplasm progression [Fatal]
  - Haematotoxicity [Fatal]
  - Neutropenia [Not Recovered/Not Resolved]
  - Anaemia [Not Recovered/Not Resolved]
  - Thrombocytopenia [Not Recovered/Not Resolved]
  - Plasma cell myeloma [Unknown]

NARRATIVE: CASE EVENT DATE: 20230101
